FAERS Safety Report 8969129 (Version 1)
Quarter: 2012Q4

REPORT INFORMATION
  Report Type: Spontaneous
  Country: US (occurrence: None)
  Receive Date: 20121214
  Receipt Date: 20121214
  Transmission Date: 20130627
  Serious: Yes (Other)
  Sender: FDA-Public Use
  Company Number: None

PATIENT
  Age: 43 Year
  Sex: Male
  Weight: 72.58 kg

DRUGS (1)
  1. NALTREXONE [Suspect]
     Indication: DRUG ADDICTION

REACTIONS (7)
  - Implant site reaction [None]
  - Implant site abscess [None]
  - Scar [None]
  - Infection [None]
  - Hypersensitivity [None]
  - Product contamination [None]
  - Product quality issue [None]
